FAERS Safety Report 11847889 (Version 1)
Quarter: 2015Q4

REPORT INFORMATION
  Report Type: Report from Study
  Country: AU (occurrence: AU)
  Receive Date: 20151217
  Receipt Date: 20151217
  Transmission Date: 20160305
  Serious: Yes (Hospitalization)
  Sender: FDA-Public Use
  Company Number: AU-KADMON PHARMACEUTICALS, LLC-KAD201512-004434

PATIENT
  Sex: Male

DRUGS (2)
  1. RIBAVIRIN. [Suspect]
     Active Substance: RIBAVIRIN
     Indication: HEPATITIS C
     Dosage: TABLET
     Dates: start: 20151107
  2. VIEKIRA PAK [Suspect]
     Active Substance: DASABUVIR\OMBITASVIR\PARITAPREVIR\RITONAVIR
     Indication: HEPATITIS C
     Dosage: TABLET, AV1 X 2 MANE, AV2 X 1 BD
     Route: 048
     Dates: start: 20151107

REACTIONS (9)
  - Neck pain [Unknown]
  - Asthenia [Unknown]
  - Depressed mood [Unknown]
  - Immunodeficiency [Unknown]
  - Hyperhidrosis [Unknown]
  - Feeling abnormal [Unknown]
  - Pericarditis [Unknown]
  - Dyspnoea [Unknown]
  - Pruritus [Recovered/Resolved]
